FAERS Safety Report 12988884 (Version 3)
Quarter: 2017Q2

REPORT INFORMATION
  Report Type: Spontaneous
  Country: US (occurrence: US)
  Receive Date: 20161201
  Receipt Date: 20170406
  Transmission Date: 20170830
  Serious: Yes (Other)
  Sender: FDA-Public Use
  Company Number: US-AMGEN-USASP2016166394

PATIENT
  Sex: Male
  Weight: 3.57 kg

DRUGS (1)
  1. ENBREL [Suspect]
     Active Substance: ETANERCEPT
     Indication: EXPOSURE DURING PREGNANCY
     Dosage: UNK UNK, QWK
     Route: 064
     Dates: start: 201312, end: 201507

REACTIONS (5)
  - Meconium aspiration syndrome [Unknown]
  - Foetal heart rate decreased [Unknown]
  - Hypospadias [Recovered/Resolved]
  - Escherichia urinary tract infection [Recovered/Resolved]
  - Breech presentation [Recovered/Resolved]

NARRATIVE: CASE EVENT DATE: 2016
